FAERS Safety Report 13746318 (Version 1)
Quarter: 2017Q3

REPORT INFORMATION
  Report Type: Report from Study
  Country: US (occurrence: US)
  Receive Date: 20170712
  Receipt Date: 20170712
  Transmission Date: 20171127
  Serious: Yes (Hospitalization)
  Sender: FDA-Public Use
  Company Number: US-EISAI MEDICAL RESEARCH-EC-2017-025808

PATIENT
  Sex: Male
  Weight: 77.11 kg

DRUGS (6)
  1. AFINITOR [Concomitant]
     Active Substance: EVEROLIMUS
  2. INDOMETHACIN. [Concomitant]
     Active Substance: INDOMETHACIN
  3. LENVIMA [Suspect]
     Active Substance: LENVATINIB
     Indication: RENAL CELL CARCINOMA
     Route: 048
     Dates: start: 20170225, end: 2017
  4. AMLODIPINE BESYLATE. [Concomitant]
     Active Substance: AMLODIPINE BESYLATE
  5. LENVIMA [Suspect]
     Active Substance: LENVATINIB
     Route: 048
     Dates: start: 2017
  6. ALLOPURINOL. [Concomitant]
     Active Substance: ALLOPURINOL

REACTIONS (14)
  - Vomiting [Not Recovered/Not Resolved]
  - Blood pressure increased [Recovered/Resolved]
  - Headache [Not Recovered/Not Resolved]
  - Hostility [Unknown]
  - Oral pain [Unknown]
  - Rash [Not Recovered/Not Resolved]
  - Ageusia [Unknown]
  - Dehydration [Unknown]
  - Nasal congestion [Unknown]
  - Diarrhoea [Unknown]
  - Nausea [Not Recovered/Not Resolved]
  - Weight decreased [Unknown]
  - Fatigue [Not Recovered/Not Resolved]
  - Irritability [Unknown]

NARRATIVE: CASE EVENT DATE: 2017
